FAERS Safety Report 9513285 (Version 1)
Quarter: 2013Q3

REPORT INFORMATION
  Report Type: Spontaneous
  Country: BE (occurrence: BE)
  Receive Date: 20130910
  Receipt Date: 20130910
  Transmission Date: 20140515
  Serious: Yes (Death, Other)
  Sender: FDA-Public Use
  Company Number: BE-WATSON-2013-15622

PATIENT
  Age: 38 Year
  Sex: Male
  Weight: 57 kg

DRUGS (9)
  1. EFAVIRENZ (UNKNOWN) [Suspect]
     Indication: HIV INFECTION
     Dosage: 600 MG AT NIGHT
     Route: 065
  2. ISONIAZID (WATSON LABORATORIES) [Interacting]
     Indication: TUBERCULOSIS
     Dosage: UNK
     Route: 065
     Dates: start: 20090403
  3. STAVUDINE (UNKNOWN) [Suspect]
     Indication: HIV INFECTION
     Dosage: 15 MG 12 HOURLY
     Route: 065
  4. LAMIVUDINE (UNKNOWN) [Suspect]
     Indication: HIV INFECTION
     Dosage: 150 MG, DAILY
  5. PYRAZINAMIDE [Concomitant]
     Indication: TUBERCULOSIS
     Dosage: UNK
     Route: 065
  6. ETHAMBUTOL [Concomitant]
     Indication: TUBERCULOSIS
     Dosage: UNK
     Route: 065
  7. COTRIMOXAZOLE [Concomitant]
     Indication: PRODUCT USED FOR UNKNOWN INDICATION
     Dosage: 480 MG, DAILY
     Route: 065
  8. NEVIRAPINE [Concomitant]
     Indication: HIV INFECTION
     Dosage: 200 MG 12 HOURLY
     Route: 065
  9. RIFAMPICIN [Concomitant]
     Indication: TUBERCULOSIS
     Dosage: UNK
     Route: 065
     Dates: start: 20090403

REACTIONS (5)
  - Pneumonia aspiration [Fatal]
  - Coma [Unknown]
  - Cerebral atrophy [Unknown]
  - Drug level increased [Unknown]
  - Drug interaction [Unknown]
